FAERS Safety Report 12767383 (Version 1)
Quarter: 2016Q3

REPORT INFORMATION
  Report Type: Spontaneous
  Country: US (occurrence: US)
  Receive Date: 20160915
  Receipt Date: 20160915
  Transmission Date: 20161109
  Serious: No
  Sender: FDA-Public Use
  Company Number: None

PATIENT
  Sex: Female

DRUGS (1)
  1. ENTYVIO [Suspect]
     Active Substance: VEDOLIZUMAB
     Indication: COLITIS ULCERATIVE
     Dosage: ENTYVIO 300MG - INTRAVENOUS - EVERY 8 WEEKS
     Route: 042
     Dates: start: 20160314

REACTIONS (1)
  - Hair texture abnormal [None]
